FAERS Safety Report 22371132 (Version 1)
Quarter: 2023Q2

REPORT INFORMATION
  Report Type: Spontaneous
  Country: US (occurrence: US)
  Receive Date: 20230526
  Receipt Date: 20230526
  Transmission Date: 20230721
  Serious: Yes (Hospitalization)
  Sender: FDA-Public Use
  Company Number: US-BRISTOL-MYERS SQUIBB COMPANY-2023-069585

PATIENT
  Age: 41 Year
  Sex: Male

DRUGS (1)
  1. THALOMID [Suspect]
     Active Substance: THALIDOMIDE
     Indication: Plasma cell myeloma
     Route: 048
     Dates: start: 202302

REACTIONS (7)
  - Dizziness [Unknown]
  - Agitation [Unknown]
  - Chest pain [Unknown]
  - Chest discomfort [Unknown]
  - Somnolence [Unknown]
  - Pain in extremity [Unknown]
  - Thrombosis [Unknown]
